FAERS Safety Report 25376339 (Version 1)
Quarter: 2025Q2

REPORT INFORMATION
  Report Type: Spontaneous
  Country: DE (occurrence: DE)
  Receive Date: 20250529
  Receipt Date: 20250529
  Transmission Date: 20250717
  Serious: Yes (Other)
  Sender: TAKEDA
  Company Number: DE-JNJFOC-20250529771

PATIENT

DRUGS (4)
  1. VELCADE [Suspect]
     Active Substance: BORTEZOMIB
     Indication: Primary amyloidosis
  2. DARZALEX [Suspect]
     Active Substance: DARATUMUMAB
     Indication: Primary amyloidosis
  3. DEXAMETHASONE [Suspect]
     Active Substance: DEXAMETHASONE
     Indication: Primary amyloidosis
  4. CYCLOPHOSPHAMIDE [Suspect]
     Active Substance: CYCLOPHOSPHAMIDE
     Indication: Primary amyloidosis

REACTIONS (2)
  - Cardiotoxicity [Recovered/Resolved]
  - Atrioventricular block [Recovered/Resolved]
